FAERS Safety Report 26075273 (Version 1)
Quarter: 2025Q4

REPORT INFORMATION
  Report Type: Spontaneous
  Country: CA (occurrence: CA)
  Receive Date: 20251121
  Receipt Date: 20251121
  Transmission Date: 20260117
  Serious: Yes (Life-Threatening, Other)
  Sender: TEVA
  Company Number: CA-TEVA-VS-3393153

PATIENT
  Age: 45 Year

DRUGS (5)
  1. PACLITAXEL [Suspect]
     Active Substance: PACLITAXEL
     Indication: Breast cancer
     Dosage: DOSE FORM: SOLUTION INTRAVENOUS
     Route: 065
  2. ALOXI [Concomitant]
     Active Substance: PALONOSETRON HYDROCHLORIDE
     Indication: Product used for unknown indication
     Route: 065
  3. AKYNZEO [Concomitant]
     Indication: Product used for unknown indication
     Route: 065
  4. PROCHLORPERAZINE [Concomitant]
     Active Substance: PROCHLORPERAZINE
     Indication: Product used for unknown indication
     Dosage: DOSE FORM: NOT SPECIFIED
     Route: 065
  5. FILGRASTIM [Concomitant]
     Active Substance: FILGRASTIM
     Indication: Product used for unknown indication
     Route: 065

REACTIONS (5)
  - Nausea [Recovered/Resolved]
  - Chest discomfort [Recovered/Resolved]
  - Oropharyngeal pain [Recovered/Resolved]
  - Lip discolouration [Recovered/Resolved]
  - Flushing [Recovered/Resolved]
